FAERS Safety Report 7628150-7 (Version None)
Quarter: 2011Q3

REPORT INFORMATION
  Report Type: 
  Country: None (occurrence: None)
  Receive Date: 20110720
  Receipt Date: 20110720
  Transmission Date: 20111222
  Serious: Yes (Hospitalization)
  Sender: FDA-Public Use
  Company Number: None

PATIENT
  Sex: Female
  Weight: 15.3 kg

DRUGS (11)
  1. G-CSF (FILGRASTIM, AMGEN) [Suspect]
     Dosage: 2325 MCG
  2. IRINOTECAN HCL [Concomitant]
     Dosage: 327.5 MG
  3. DACTINOMYCIN [Suspect]
     Dosage: 1.33 MG
  4. CIPRODEX [Concomitant]
  5. CYPROHEPTADINE HYDROCHLORIDE [Concomitant]
  6. CYCLOPHOSPHAMIDE [Suspect]
     Dosage: 2328 MG
  7. AUGMENTIN '125' [Concomitant]
  8. MESNA [Suspect]
     Dosage: 1398 MG
  9. SEPTRA ORAL SUSPENSION [Concomitant]
  10. VINCRISTINE SULFATE [Suspect]
     Dosage: 13 MG
  11. CEFTRIAXONE [Concomitant]

REACTIONS (1)
  - LYMPHOCYTE COUNT DECREASED [None]
